FAERS Safety Report 20534070 (Version 2)
Quarter: 2022Q1

REPORT INFORMATION
  Report Type: Spontaneous
  Country: FR (occurrence: FR)
  Receive Date: 20220301
  Receipt Date: 20220301
  Transmission Date: 20220423
  Serious: Yes (Congenital Anomaly, Other)
  Sender: FDA-Public Use
  Company Number: FR-ABBVIE-22K-056-4295763-00

PATIENT
  Sex: Female
  Weight: 2.41 kg

DRUGS (6)
  1. VALPROATE SODIUM [Suspect]
     Active Substance: VALPROATE SODIUM
     Indication: Maternal exposure timing unspecified
     Route: 064
  2. NICARDIPINE HYDROCHLORIDE [Suspect]
     Active Substance: NICARDIPINE HYDROCHLORIDE
     Indication: Maternal exposure timing unspecified
     Route: 064
  3. NEBIVOLOL [Suspect]
     Active Substance: NEBIVOLOL
     Indication: Maternal exposure timing unspecified
     Route: 064
  4. ASPIRIN DL-LYSINE [Suspect]
     Active Substance: ASPIRIN DL-LYSINE
     Indication: Maternal exposure timing unspecified
     Route: 064
  5. TOPIRAMATE [Concomitant]
     Active Substance: TOPIRAMATE
     Indication: Maternal exposure timing unspecified
  6. CLOBAZAM [Concomitant]
     Active Substance: CLOBAZAM
     Indication: Maternal exposure timing unspecified

REACTIONS (39)
  - Urethral intrinsic sphincter deficiency [Unknown]
  - Neurogenic bladder [Unknown]
  - Pyelonephritis [Unknown]
  - Sleep disorder [Unknown]
  - Fatigue [Unknown]
  - Dysmorphism [Unknown]
  - Meningomyelocele [Unknown]
  - Strabismus [Unknown]
  - Astigmatism [Unknown]
  - Memory impairment [Unknown]
  - Learning disability [Unknown]
  - Cognitive disorder [Unknown]
  - Talipes [Unknown]
  - Arnold-Chiari malformation [Unknown]
  - Foetal growth restriction [Unknown]
  - Gait disturbance [Unknown]
  - Dyspraxia [Unknown]
  - Fall [Unknown]
  - Loss of consciousness [Unknown]
  - Dilatation ventricular [Unknown]
  - Talipes [Unknown]
  - Foot deformity [Unknown]
  - Tibial torsion [Unknown]
  - Sitting disability [Unknown]
  - Visuospatial deficit [Unknown]
  - Bladder disorder [Unknown]
  - Anal sphincter atony [Unknown]
  - Hypertonic bladder [Unknown]
  - Macrocephaly [Unknown]
  - Tooth hypoplasia [Unknown]
  - Congenital hydrocephalus [Unknown]
  - Vomiting [Unknown]
  - Disturbance in attention [Unknown]
  - Malaise [Unknown]
  - Spina bifida [Unknown]
  - Limb malformation [Unknown]
  - Headache [Unknown]
  - Urinary tract infection [Unknown]
  - Foetal exposure during pregnancy [Unknown]

NARRATIVE: CASE EVENT DATE: 20130701
